FAERS Safety Report 5670044-0 (Version None)
Quarter: 2008Q1

REPORT INFORMATION
  Report Type: 
  Country: None (occurrence: None)
  Receive Date: 20080312
  Receipt Date: 20080222
  Transmission Date: 20080703
  Serious: Yes (Disabling, Other)
  Sender: FDA-Public Use
  Company Number: US022811

PATIENT
  Age: 31 Year
  Sex: Female
  Weight: 46 kg

DRUGS (7)
  1. PROVIGIL [Suspect]
     Indication: FATIGUE
     Dosage: 200 MG QD ORAL
     Route: 048
     Dates: start: 20050201
  2. PROVIGIL [Suspect]
     Indication: FATIGUE
     Dosage: 200 MG QD ORAL
     Route: 048
     Dates: end: 20080204
  3. AMITRIPTYLINE HCL [Suspect]
     Indication: DEPRESSION
     Dosage: 150 MG QD
     Dates: start: 20060701
  4. AMITRIPTYLINE HCL [Suspect]
     Indication: INSOMNIA
     Dosage: 150 MG QD
     Dates: start: 20060701
  5. NIFEDIPINE [Suspect]
     Indication: RAYNAUD'S PHENOMENON
     Dosage: 5 MG QD
     Dates: start: 20040101
  6. MICROGYNON /00022701/ [Suspect]
     Indication: CONTRACEPTION
     Dosage: 30 MG QD
     Dates: start: 20040101
  7. CALCICHEW [Suspect]
     Indication: OSTEOPENIA
     Dosage: ONE TABLET QD
     Dates: start: 19980101

REACTIONS (2)
  - DRUG INTERACTION [None]
  - LUPUS-LIKE SYNDROME [None]
